FAERS Safety Report 9291380 (Version 3)
Quarter: 2014Q2

REPORT INFORMATION
  Report Type: Spontaneous
  Country: US (occurrence: US)
  Receive Date: 20130515
  Receipt Date: 20140505
  Transmission Date: 20141212
  Serious: No
  Sender: FDA-Public Use
  Company Number: US-009507513-1305USA006114

PATIENT
  Sex: Male
  Weight: 76.28 kg

DRUGS (2)
  1. PROPECIA [Suspect]
     Indication: ANDROGENETIC ALOPECIA
     Dosage: 1 MG, QD
     Route: 048
     Dates: start: 2004, end: 2005
  2. PROPECIA [Suspect]
     Dosage: 1 MG, QD
     Route: 048
     Dates: start: 200510, end: 201003

REACTIONS (17)
  - Anxiety [Unknown]
  - Asthenia [Unknown]
  - Dysarthria [Unknown]
  - Lichen sclerosus [Unknown]
  - Hypogonadism [Unknown]
  - Blood growth hormone decreased [Unknown]
  - Hair growth abnormal [Unknown]
  - Muscle atrophy [Unknown]
  - Goitre [Unknown]
  - Social problem [Unknown]
  - Depression [Unknown]
  - Erectile dysfunction [Not Recovered/Not Resolved]
  - Sexual dysfunction [Not Recovered/Not Resolved]
  - Libido decreased [Unknown]
  - Erectile dysfunction [Unknown]
  - Drug ineffective [Unknown]
  - Anti-thyroid antibody positive [Unknown]
